FAERS Safety Report 8815188 (Version 1)
Quarter: 2012Q4

REPORT INFORMATION
  Report Type: 
  Country: CA (occurrence: CA)
  Receive Date: 20120928
  Receipt Date: 20120928
  Transmission Date: 20130627
  Serious: Yes (Other)
  Sender: FDA-Public Use
  Company Number: CA-JNJFOC-20120912215

PATIENT
  Sex: Female

DRUGS (2)
  1. XARELTO [Suspect]
     Indication: TENDON OPERATION
     Route: 065
  2. XARELTO [Suspect]
     Indication: THROMBOSIS PROPHYLAXIS
     Route: 065

REACTIONS (1)
  - Ischaemic stroke [Unknown]
